FAERS Safety Report 23513332 (Version 1)
Quarter: 2024Q1

REPORT INFORMATION
  Report Type: Spontaneous
  Country: US (occurrence: US)
  Receive Date: 20240212
  Receipt Date: 20240212
  Transmission Date: 20240409
  Serious: Yes (Other)
  Sender: FDA-Public Use
  Company Number: US-RECORDATI RARE DISEASE INC.-2023002805

PATIENT
  Sex: Female

DRUGS (2)
  1. PANHEMATIN [Suspect]
     Active Substance: HEMIN
     Indication: Product used for unknown indication
     Dosage: UNK
     Route: 042
  2. PANHEMATIN [Suspect]
     Active Substance: HEMIN
     Dosage: UNK
     Route: 042
     Dates: start: 20230505, end: 20230505

REACTIONS (3)
  - Cellulitis [Unknown]
  - Peripheral swelling [Unknown]
  - Phlebitis [Unknown]

NARRATIVE: CASE EVENT DATE: 20230508
